FAERS Safety Report 4554974-9 (Version None)
Quarter: 2004Q4

REPORT INFORMATION
  Report Type: 
  Country: None (occurrence: None)
  Receive Date: 20041222
  Receipt Date: 20041111
  Transmission Date: 20050328
  Serious: Yes (Other)
  Sender: FDA-Public Use
  Company Number: 208538

PATIENT
  Age: 58 Year
  Sex: Female
  Weight: 89.8 kg

DRUGS (6)
  1. AVASTIN [Suspect]
     Indication: COLORECTAL CANCER METASTATIC
     Dosage: 5 MG, Q2W, INTRAVENOUS
     Route: 042
     Dates: start: 20040315
  2. IRINOTECAN (IRINOTECAN HYDROCHLORIDE) [Concomitant]
  3. FLUOROURACIL [Concomitant]
  4. LEUCOVORIN CALCIUM [Concomitant]
  5. FLUOXETINE HYDROCHLORIDE [Concomitant]
  6. DECADRON [Concomitant]

REACTIONS (1)
  - DEEP VEIN THROMBOSIS [None]
